FAERS Safety Report 8287890-X (Version None)
Quarter: 2012Q2

REPORT INFORMATION
  Report Type: 
  Country: None (occurrence: None)
  Receive Date: 20120416
  Receipt Date: 20120409
  Transmission Date: 20120825
  Serious: Yes (Disabling, Other)
  Sender: FDA-Public Use
  Company Number: US-B.I. PHARMACEUTICALS,INC./RIDGEFIELD-2012-BP-04194BP

PATIENT
  Sex: Male
  Weight: 69.39 kg

DRUGS (10)
  1. LYRICA [Suspect]
     Indication: NEURALGIA
     Dosage: 150 MG
     Route: 048
     Dates: start: 20120210, end: 20120212
  2. SIMVASTATIN [Concomitant]
     Indication: BLOOD CHOLESTEROL INCREASED
     Dosage: 20 MG
  3. GLYBURIDE [Concomitant]
     Indication: DIABETES MELLITUS
     Dosage: 5 MG
  4. FENTANYL [Concomitant]
     Indication: NEUROPATHY PERIPHERAL
  5. MOBIC [Suspect]
  6. IBUPROFEN [Suspect]
  7. CARVEDILOL [Concomitant]
     Indication: HYPERTENSION
     Dosage: 12.5 MG
  8. XALATAN [Concomitant]
  9. ASPIRIN [Concomitant]
     Indication: CARDIAC DISORDER
     Dosage: 162 MG
  10. COQ10 [Concomitant]

REACTIONS (7)
  - DIZZINESS [None]
  - CEREBROVASCULAR ACCIDENT [None]
  - GASTRITIS [None]
  - VISUAL IMPAIRMENT [None]
  - BLINDNESS UNILATERAL [None]
  - DIPLOPIA [None]
  - INTRAOCULAR PRESSURE INCREASED [None]
